FAERS Safety Report 7249403-0 (Version None)
Quarter: 2011Q1

REPORT INFORMATION
  Report Type: 
  Country: None (occurrence: None)
  Receive Date: 20110128
  Receipt Date: 20101201
  Transmission Date: 20110831
  Serious: Yes (Other)
  Sender: FDA-Public Use
  Company Number: US-BAYER-201024206NA

PATIENT
  Sex: Female
  Weight: 80.455 kg

DRUGS (15)
  1. YAZ [Suspect]
     Indication: CONTRACEPTION
     Route: 048
     Dates: start: 20070401, end: 20090615
  2. METRONIDAZOLE [Concomitant]
  3. KETOCONAZOLE [Concomitant]
  4. FAMOTIDINE [Concomitant]
  5. UNKNOWN [Concomitant]
  6. FAMOTIDINE [Concomitant]
  7. IBUPROFEN [Concomitant]
  8. CYCLOBENZAPRINE [Concomitant]
  9. PROMETHAZINE [Concomitant]
  10. PROPOXYPHENE NAPSYLATE W/PARACETAMOL [Concomitant]
  11. HYDROCODONE [Concomitant]
     Dosage: DOSING: 5/50 AND 7.5/650
  12. YAZ [Suspect]
     Dosage: YAZ REFILLED ACCORDING PHARMACY RECORDS
     Route: 048
     Dates: start: 20080627, end: 20081209
  13. YAZ [Suspect]
     Dosage: YAZ REFILLED ACCORDING PHARMACY RECORDS
     Route: 048
     Dates: start: 20090109, end: 20090629
  14. ACETAMINOPHEN W/ CODEINE [Concomitant]
  15. MEPERIDINE HCL [Concomitant]

REACTIONS (5)
  - VOMITING [None]
  - EMOTIONAL DISTRESS [None]
  - NAUSEA [None]
  - ABDOMINAL PAIN [None]
  - CHOLECYSTITIS CHRONIC [None]
